FAERS Safety Report 5643131-0 (Version None)
Quarter: 2008Q1

REPORT INFORMATION
  Report Type: 
  Country: None (occurrence: None)
  Receive Date: 20080228
  Receipt Date: 20080206
  Transmission Date: 20080703
  Serious: Yes (Other)
  Sender: FDA-Public Use
  Company Number: JP-ROCHE-546544

PATIENT
  Age: 7 Year
  Sex: Male
  Weight: 22 kg

DRUGS (5)
  1. TAMIFLU [Suspect]
     Route: 048
     Dates: start: 20080204, end: 20080204
  2. UNSPECIFIED DRUG [Concomitant]
     Dosage: DRUG REPORTED AS HUSCOBRON (ANTITUSSIVE COMBINED DRUG)
     Route: 048
     Dates: start: 20080204
  3. UNSPECIFIED DRUG [Concomitant]
     Dosage: DRUG REPORTED AS LL(NON-PYRINE COLD PREPARATION)
     Route: 048
     Dates: start: 20080204
  4. MUCODYNE [Concomitant]
     Route: 048
     Dates: start: 20080204
  5. METOCLOPRAMIDE [Concomitant]
     Dosage: DRUG REPORTED AS FOLICRON
     Route: 048
     Dates: start: 20080204

REACTIONS (2)
  - ABNORMAL BEHAVIOUR [None]
  - HALLUCINATION [None]
